FAERS Safety Report 6320657-8 (Version None)
Quarter: 2009Q3

REPORT INFORMATION
  Report Type: 
  Country: None (occurrence: None)
  Receive Date: 20090822
  Receipt Date: 20081120
  Transmission Date: 20100115
  Serious: No
  Sender: FDA-Public Use
  Company Number: US-ABBOTT-08P-163-0488779-00

PATIENT
  Sex: Male
  Weight: 63.56 kg

DRUGS (3)
  1. NIASPAN [Suspect]
     Indication: BLOOD CHOLESTEROL
     Dates: start: 20081111, end: 20081115
  2. NIASPAN [Suspect]
     Dates: start: 20081115, end: 20081119
  3. NIASPAN [Suspect]
     Dates: start: 20081119

REACTIONS (3)
  - ANXIETY [None]
  - DEPRESSION [None]
  - FLUSHING [None]
